FAERS Safety Report 4374924-8 (Version None)
Quarter: 2004Q2

REPORT INFORMATION
  Report Type: 
  Country: None (occurrence: None)
  Receive Date: 20040609
  Receipt Date: 20040528
  Transmission Date: 20050107
  Serious: Yes (Other)
  Sender: FDA-Public Use
  Company Number: PHBS2004JP07220

PATIENT

DRUGS (1)
  1. CYCLOSPORINE [Suspect]
     Route: 065

REACTIONS (1)
  - ATRIOVENTRICULAR BLOCK [None]
